FAERS Safety Report 17706958 (Version 1)
Quarter: 2020Q2

REPORT INFORMATION
  Report Type: Spontaneous
  Country: US (occurrence: US)
  Receive Date: 20200424
  Receipt Date: 20200424
  Transmission Date: 20200714
  Serious: Yes (Other)
  Sender: FDA-Public Use
  Company Number: US-ALEXION PHARMACEUTICALS INC.-A202005702

PATIENT
  Age: 59 Year
  Sex: Female

DRUGS (2)
  1. SOLIRIS [Suspect]
     Active Substance: ECULIZUMAB
     Dosage: 1200 UNK, UNK
     Route: 065
  2. SOLIRIS [Suspect]
     Active Substance: ECULIZUMAB
     Indication: ATYPICAL HAEMOLYTIC URAEMIC SYNDROME
     Dosage: UNK
     Route: 065
     Dates: start: 202003

REACTIONS (5)
  - Haemolysis [Unknown]
  - Platelet count abnormal [Unknown]
  - Drug ineffective [Unknown]
  - Rectal haemorrhage [Unknown]
  - Platelet count decreased [Unknown]
